FAERS Safety Report 7996006-6 (Version None)
Quarter: 2011Q4

REPORT INFORMATION
  Report Type: 
  Country: None (occurrence: None)
  Receive Date: 20111220
  Receipt Date: 20111209
  Transmission Date: 20120403
  Serious: Yes (Death, Other)
  Sender: FDA-Public Use
  Company Number: PHHY2011FR109670

PATIENT
  Age: 55 Year
  Sex: Male

DRUGS (1)
  1. AFINITOR [Suspect]
     Dosage: UNK UKN, UNK

REACTIONS (2)
  - DEATH [None]
  - LUNG DISORDER [None]
